FAERS Safety Report 9965290 (Version 1)
Quarter: 2014Q1

REPORT INFORMATION
  Report Type: Report from Study
  Country: US (occurrence: US)
  Receive Date: 20140305
  Receipt Date: 20140305
  Transmission Date: 20141002
  Serious: No
  Sender: FDA-Public Use
  Company Number: US-ABBVIE-13P-163-1124433-00

PATIENT
  Age: 65 Year
  Sex: Female
  Weight: 78.54 kg

DRUGS (4)
  1. HUMIRA [Suspect]
     Indication: RHEUMATOID ARTHRITIS
     Route: 058
     Dates: start: 2003, end: 201210
  2. LOSARTAN [Concomitant]
     Indication: HYPERTENSION
  3. EYE DROPS [Concomitant]
     Indication: PRODUCT USED FOR UNKNOWN INDICATION
     Route: 047
  4. NO DRUG NAME [Concomitant]
     Indication: RHEUMATOID ARTHRITIS
     Dates: start: 201307

REACTIONS (1)
  - Asthenia [Not Recovered/Not Resolved]
